FAERS Safety Report 7602802-7 (Version None)
Quarter: 2011Q3

REPORT INFORMATION
  Report Type: 
  Country: None (occurrence: None)
  Receive Date: 20110701
  Receipt Date: 20110621
  Transmission Date: 20111222
  Serious: Yes (Other)
  Sender: FDA-Public Use
  Company Number: US-2011-10425

PATIENT
  Age: 15 Month
  Sex: Female

DRUGS (7)
  1. CYCLOPHOSPHAMIDE [Suspect]
     Indication: STEM CELL TRANSPLANT
     Dosage: 60 MG/KG, DAILY DOSE, INTRAVENOUS
     Route: 042
  2. ANITHYMOCYLE IMMUNOGLOBOLUN (ANTIHYMOCYL IMMUNOGLOBULIN) [Concomitant]
  3. MESNA DELTA FAMA (EDELATE DISODIUM, MESNA) [Concomitant]
  4. MELPHALAN HYDROCHLORIDE [Concomitant]
  5. BUSULFAN [Suspect]
     Indication: STEM CELL TRANSPLANT
     Dosage: 120 MG MILLIGRAM(S), DAILY DOSE, INTRAVENOUS
     Route: 042
  6. CYCLOSPORINE [Concomitant]
  7. PREDNISOLONE [Concomitant]

REACTIONS (9)
  - INTESTINAL STENOSIS [None]
  - RECTAL HAEMORRHAGE [None]
  - HAEMORRHAGE [None]
  - FIBROSIS [None]
  - GRAFT VERSUS HOST DISEASE [None]
  - HAEMATEMESIS [None]
  - DUODENAL STENOSIS [None]
  - ADENOVIRUS INFECTION [None]
  - GASTROINTESTINAL DISORDER [None]
